FAERS Safety Report 4524086-9 (Version None)
Quarter: 2004Q4

REPORT INFORMATION
  Report Type: 
  Country: None (occurrence: None)
  Receive Date: 20041119
  Receipt Date: 20040817
  Transmission Date: 20050328
  Serious: No
  Sender: FDA-Public Use
  Company Number: PHEH2004US08935

PATIENT
  Age: 73 Year
  Sex: Female

DRUGS (7)
  1. ZELNORM [Suspect]
     Indication: IRRITABLE BOWEL SYNDROME
     Dosage: 6 MG, BID, ORAL
     Route: 048
     Dates: start: 20040601, end: 20040701
  2. ZELNORM [Suspect]
     Indication: IRRITABLE BOWEL SYNDROME
     Dosage: 6 MG, BID, ORAL
     Route: 048
     Dates: start: 20040801, end: 20040812
  3. PREVACID [Concomitant]
  4. PROZAC [Concomitant]
  5. THYROID PREPARATIONS [Concomitant]
  6. IRON [Concomitant]
  7. MULTIVITAMINS (PANTHENOL, RETINOL) [Concomitant]

REACTIONS (2)
  - ARTHRITIS [None]
  - BACK PAIN [None]
